FAERS Safety Report 22696322 (Version 4)
Quarter: 2024Q2

REPORT INFORMATION
  Report Type: Spontaneous
  Country: US (occurrence: US)
  Receive Date: 20230712
  Receipt Date: 20240507
  Transmission Date: 20240716
  Serious: Yes (Other)
  Sender: FDA-Public Use
  Company Number: US-PFIZER INC-202300248432

PATIENT
  Age: 79 Year
  Sex: Female
  Weight: 68.9 kg

DRUGS (6)
  1. IBRANCE [Suspect]
     Active Substance: PALBOCICLIB
     Indication: Breast cancer metastatic
     Dosage: TAKE 1 TABLET DAILY FOR 21 DAYS, FOLLOWED BY 7 DAYS OFF, REPEAT EVERY 28 DAYS
     Route: 048
     Dates: start: 202010
  2. IBRANCE [Suspect]
     Active Substance: PALBOCICLIB
     Dosage: TAKE ONE TABLET BY MOUTH DAILY FOR 21 DAYS FOLLOWED BY 7 DAYS OFF, REPEAT EVERY 28 DAYS
     Route: 048
  3. LETROZOLE [Concomitant]
     Active Substance: LETROZOLE
     Dosage: UNK
     Dates: start: 202010
  4. XANAX [Concomitant]
     Active Substance: ALPRAZOLAM
     Indication: Sleep disorder
     Dosage: TAKE 1 TABLET (0.25 MG TOTAL) BY MOUTH DAILY AS NEEDED
     Route: 048
  5. XANAX [Concomitant]
     Active Substance: ALPRAZOLAM
     Indication: Anxiety
  6. ZOLOFT [Concomitant]
     Active Substance: SERTRALINE HYDROCHLORIDE
     Dosage: TAKE 1 TABLET (100 MG TOTAL) BY MOUTH DAILY
     Route: 048

REACTIONS (8)
  - Second primary malignancy [Unknown]
  - Squamous cell carcinoma [Unknown]
  - COVID-19 [Unknown]
  - Gait disturbance [Unknown]
  - Fatigue [Unknown]
  - Hypersomnia [Unknown]
  - Arthralgia [Unknown]
  - Nephropathy [Unknown]

NARRATIVE: CASE EVENT DATE: 20221101
